FAERS Safety Report 21507693 (Version 1)
Quarter: 2022Q4

REPORT INFORMATION
  Report Type: Spontaneous
  Country: US (occurrence: US)
  Receive Date: 20221026
  Receipt Date: 20221026
  Transmission Date: 20230112
  Serious: No
  Sender: FDA-Public Use
  Company Number: US-PFIZER INC-2021432593

PATIENT
  Age: 74 Year
  Sex: Female

DRUGS (1)
  1. BOSULIF [Suspect]
     Active Substance: BOSUTINIB MONOHYDRATE
     Dosage: 400 MG, CYCLIC (ONE TABLET TWO DAYS ON, ONE DAY OFF)
     Route: 048

REACTIONS (2)
  - Off label use [Unknown]
  - Speech disorder [Unknown]
